FAERS Safety Report 25508460 (Version 3)
Quarter: 2025Q3

REPORT INFORMATION
  Report Type: Spontaneous
  Country: EU (occurrence: EU)
  Receive Date: 20250703
  Receipt Date: 20250923
  Transmission Date: 20251020
  Serious: Yes (Death, Other)
  Sender: AUROBINDO
  Company Number: EU-ADIENNEP-2024AD000117

PATIENT
  Age: 42 Year
  Sex: Male

DRUGS (16)
  1. METHOTREXATE [Suspect]
     Active Substance: METHOTREXATE
     Indication: Prophylaxis against graft versus host disease
     Route: 065
  2. BUSULFAN [Suspect]
     Active Substance: BUSULFAN
     Indication: Allogenic stem cell transplantation
     Dosage: 3.2 MILLIGRAM/KILOGRAM, ONCE A DAY
     Route: 065
     Dates: start: 2023, end: 2023
  3. BUSULFAN [Suspect]
     Active Substance: BUSULFAN
     Indication: Bone marrow conditioning regimen
  4. BUSULFAN [Suspect]
     Active Substance: BUSULFAN
     Indication: Allogenic stem cell transplantation
  5. CYCLOSPORINE [Suspect]
     Active Substance: CYCLOSPORINE
     Indication: Prophylaxis against graft versus host disease
     Route: 065
  6. FLUDARABINE [Suspect]
     Active Substance: FLUDARABINE PHOSPHATE
     Indication: Allogenic stem cell transplantation
     Dosage: 50 MILLIGRAM/SQ. METER, ONCE A DAY (FROM DAY - 5 TO - 3)
     Route: 065
     Dates: start: 2023, end: 2023
  7. FLUDARABINE [Suspect]
     Active Substance: FLUDARABINE PHOSPHATE
     Indication: Bone marrow conditioning regimen
  8. THIOTEPA [Suspect]
     Active Substance: THIOTEPA
     Indication: Allogenic stem cell transplantation
     Dosage: 5 MILLIGRAM/KILOGRAM, ONCE A DAY (ON DAY - 7 AND - 6)
     Route: 065
     Dates: start: 2023, end: 2023
  9. THIOTEPA [Suspect]
     Active Substance: THIOTEPA
     Indication: Bone marrow conditioning regimen
  10. THYMOGLOBULINE [Suspect]
     Active Substance: LAPINE T-LYMPHOCYTE IMMUNE GLOBULIN
     Indication: Prophylaxis against graft versus host disease
     Route: 065
  11. PIPERACILLIN SODIUM\TAZOBACTAM SODIUM [Concomitant]
     Active Substance: PIPERACILLIN SODIUM\TAZOBACTAM SODIUM
     Indication: Pyrexia
     Route: 065
  12. MEROPENEM [Concomitant]
     Active Substance: MEROPENEM
     Indication: Pyrexia
     Route: 065
  13. TIGECYCLINE [Concomitant]
     Active Substance: TIGECYCLINE
     Indication: Pyrexia
     Route: 065
  14. DEFIBROTIDE [Concomitant]
     Active Substance: DEFIBROTIDE (BOVINE)
     Indication: Product used for unknown indication
     Route: 065
  15. CEFIDEROCOL [Concomitant]
     Active Substance: CEFIDEROCOL
     Indication: Pyrexia
     Route: 065
  16. METHYLPREDNISOLONE [Concomitant]
     Active Substance: METHYLPREDNISOLONE
     Indication: Graft versus host disease
     Route: 065

REACTIONS (8)
  - Vanishing bile duct syndrome [Fatal]
  - Bacterial test positive [Recovered/Resolved]
  - Pyrexia [Recovered/Resolved]
  - Pseudomonal bacteraemia [Recovered/Resolved]
  - Acute graft versus host disease in skin [Recovered/Resolved]
  - Acute graft versus host disease in liver [Unknown]
  - Renal impairment [Unknown]
  - Pseudomonas infection [Recovered/Resolved]
